FAERS Safety Report 4825739-5 (Version None)
Quarter: 2005Q4

REPORT INFORMATION
  Report Type: 
  Country: None (occurrence: None)
  Receive Date: 20051111
  Receipt Date: 20051110
  Transmission Date: 20060501
  Serious: Yes (Life-Threatening)
  Sender: FDA-Public Use
  Company Number: PHFR2005GB03690

PATIENT
  Age: 27 Year

DRUGS (3)
  1. CLOZAPINE [Suspect]
     Indication: SCHIZOPHRENIA
     Dosage: 100MG AM/250 MG PM
     Route: 048
     Dates: start: 20050801, end: 20051025
  2. REBOXETINE [Concomitant]
     Indication: DEPRESSION
     Dosage: 4 MG/AM 2 MG PRN
     Route: 048
  3. MOCLOBEMIDE [Concomitant]
     Indication: DEPRESSION
     Dosage: 300 MG/AM 450 MG/PRN
     Route: 048

REACTIONS (1)
  - CARDIOMEGALY [None]
